FAERS Safety Report 4369111-3 (Version None)
Quarter: 2004Q2

REPORT INFORMATION
  Report Type: 
  Country: None (occurrence: None)
  Receive Date: 20040528
  Receipt Date: 20040519
  Transmission Date: 20050107
  Serious: Yes (Death)
  Sender: FDA-Public Use
  Company Number: 2004214325NO

PATIENT
  Age: 71 Year
  Sex: Female

DRUGS (15)
  1. FRAGMIN [Suspect]
     Dosage: 7500 U, BID, SUBCUTANEOUS
     Route: 058
  2. ALBYL-E(ACETYLSALICYLIC ACID, MAGNESIUM OXIDE) [Suspect]
  3. PLAVIX [Suspect]
  4. VENTOLIN [Concomitant]
  5. RENITEC [Concomitant]
  6. ATROVENT [Concomitant]
  7. KREDEX [Concomitant]
  8. SOLU-CORTEF [Concomitant]
  9. SPIRIVA [Concomitant]
  10. DIURAL [Concomitant]
  11. CLAFORAN [Concomitant]
  12. NITROGLYCERIN ^DAK^ [Concomitant]
  13. SEROXAT ^NOVO NORDISK^ (PAROXETINE HYDROCHLORIDE) [Concomitant]
  14. SEREVENT [Concomitant]
  15. LOSEC [Concomitant]

REACTIONS (1)
  - HAEMORRHAGE [None]
